FAERS Safety Report 25364655 (Version 2)
Quarter: 2025Q4

REPORT INFORMATION
  Report Type: Spontaneous
  Country: JP (occurrence: JP)
  Receive Date: 20250527
  Receipt Date: 20251211
  Transmission Date: 20260118
  Serious: Yes (Other)
  Sender: JAZZ
  Company Number: JP-JAZZ PHARMACEUTICALS-2024-JP-018639

PATIENT
  Age: 7 Decade
  Sex: Male

DRUGS (3)
  1. VYXEOS [Suspect]
     Active Substance: CYTARABINE\DAUNORUBICIN
     Indication: Myelodysplastic syndrome
     Dosage: 100 UNITS/SQ M DAILY
  2. VYXEOS [Suspect]
     Active Substance: CYTARABINE\DAUNORUBICIN
     Indication: Acute myeloid leukaemia
     Dosage: UNK
  3. VYXEOS [Suspect]
     Active Substance: CYTARABINE\DAUNORUBICIN
     Dosage: UNK

REACTIONS (3)
  - Acute myeloid leukaemia recurrent [Unknown]
  - Pyrexia [Unknown]
  - Rash [Unknown]

NARRATIVE: CASE EVENT DATE: 20240101
